FAERS Safety Report 15582496 (Version 2)
Quarter: 2018Q4

REPORT INFORMATION
  Report Type: Spontaneous
  Country: US (occurrence: US)
  Receive Date: 20181103
  Receipt Date: 20181112
  Transmission Date: 20190205
  Serious: No
  Sender: FDA-Public Use
  Company Number: US-TEVA-2018-US-970696

PATIENT
  Sex: Female

DRUGS (1)
  1. MEPERIDINE HYDROCHLORIDE EPIC PHARMA [Suspect]
     Active Substance: MEPERIDINE HYDROCHLORIDE
     Indication: PAIN
     Dosage: 100 MG 2 TABLETS EVERY 4-6 HOURS
     Route: 048
     Dates: start: 20181012

REACTIONS (4)
  - Diarrhoea [Unknown]
  - Product quality issue [Unknown]
  - Malaise [Unknown]
  - Product odour abnormal [Unknown]
